FAERS Safety Report 7830277-1 (Version None)
Quarter: 2011Q4

REPORT INFORMATION
  Report Type: 
  Country: None (occurrence: None)
  Receive Date: 20111021
  Receipt Date: 20111010
  Transmission Date: 20120403
  Serious: Yes (Other)
  Sender: FDA-Public Use
  Company Number: GB-RANBAXY-2011R1-47065

PATIENT
  Age: 47 Year
  Sex: Male

DRUGS (7)
  1. OMEPRAZOLE [Concomitant]
     Indication: PRODUCT USED FOR UNKNOWN INDICATION
     Dosage: 10MG, 1DAYS
     Route: 048
  2. CLOZAPINE [Interacting]
     Indication: SCHIZOPHRENIA
     Dosage: 450 MG, BID
     Route: 065
     Dates: start: 20090728
  3. CLOZAPINE [Interacting]
     Dosage: 500 MG, QD
     Route: 048
  4. HYOSCINE [Concomitant]
     Indication: SALIVARY HYPERSECRETION
     Dosage: 300UG, 1DAYS
     Route: 048
     Dates: start: 20090701
  5. CLOZAPINE [Interacting]
     Dosage: 300 MG, BID
     Route: 048
  6. FLUOXETINE [Suspect]
     Indication: OBSESSIVE-COMPULSIVE DISORDER
     Dosage: 40 MG, QD
     Route: 048
     Dates: start: 20090701
  7. CLOZAPINE [Interacting]
     Dosage: 550 MG, QD
     Route: 065

REACTIONS (11)
  - LETHARGY [None]
  - DRUG INTERACTION [None]
  - HYPERHIDROSIS [None]
  - ABDOMINAL PAIN [None]
  - BLOOD ALKALINE PHOSPHATASE INCREASED [None]
  - DECREASED APPETITE [None]
  - WEIGHT DECREASED [None]
  - C-REACTIVE PROTEIN INCREASED [None]
  - COUGH [None]
  - PROTEIN TOTAL DECREASED [None]
  - DIARRHOEA [None]
